FAERS Safety Report 8681274 (Version 2)
Quarter: 2013Q4

REPORT INFORMATION
  Report Type: Spontaneous
  Country: US (occurrence: US)
  Receive Date: 20120725
  Receipt Date: 20131031
  Transmission Date: 20140711
  Serious: No
  Sender: FDA-Public Use
  Company Number: US-009507513-2012SP031142

PATIENT
  Sex: Female

DRUGS (1)
  1. ASMANEX TWISTHALER [Suspect]
     Dosage: 220 MCG, 60 DOSE UNIT
     Route: 055
     Dates: start: 201105

REACTIONS (2)
  - Drug dose omission [Unknown]
  - Product quality issue [Unknown]
